FAERS Safety Report 6594664-4 (Version None)
Quarter: 2010Q1

REPORT INFORMATION
  Report Type: 
  Country: None (occurrence: None)
  Receive Date: 20100222
  Receipt Date: 20100217
  Transmission Date: 20100710
  Serious: Yes (Other)
  Sender: FDA-Public Use
  Company Number: US-SANOFI-AVENTIS-2010SA009524

PATIENT
  Sex: Female

DRUGS (4)
  1. PLAVIX [Suspect]
     Route: 048
     Dates: end: 20100201
  2. PLAVIX [Suspect]
     Route: 048
     Dates: start: 20100201
  3. ANTI-SMOKING AGENTS [Suspect]
     Route: 048
     Dates: start: 20050101
  4. ANTI-SMOKING AGENTS [Suspect]
     Route: 048
     Dates: start: 20100204

REACTIONS (6)
  - ABDOMINAL DISCOMFORT [None]
  - BLOOD CHOLESTEROL INCREASED [None]
  - CEREBROVASCULAR ACCIDENT [None]
  - EPISTAXIS [None]
  - MULTIPLE SCLEROSIS [None]
  - PERIPHERAL ARTERIAL OCCLUSIVE DISEASE [None]
